FAERS Safety Report 8071543-7 (Version None)
Quarter: 2012Q1

REPORT INFORMATION
  Report Type: 
  Country: None (occurrence: None)
  Receive Date: 20120119
  Receipt Date: 20120109
  Transmission Date: 20120608
  Serious: Yes (Other)
  Sender: FDA-Public Use
  Company Number: 2012P1002477

PATIENT
  Age: 84 Year
  Sex: Female

DRUGS (8)
  1. PREDNISOLONE [Concomitant]
  2. DONEPEZIL HCL [Suspect]
  3. SALBUTAMOL INHALER [Concomitant]
  4. FLUTICASONE AND SALMETEROL INHALER [Concomitant]
  5. LANSOPRAZOLE [Concomitant]
  6. ASPIRIN [Concomitant]
  7. AMLODIPINE [Concomitant]
  8. LISINOPRIL [Concomitant]

REACTIONS (1)
  - LINEAR IGA DISEASE [None]
